FAERS Safety Report 19016969 (Version 2)
Quarter: 2021Q2

REPORT INFORMATION
  Report Type: Spontaneous
  Country: NL (occurrence: NL)
  Receive Date: 20210317
  Receipt Date: 20210607
  Transmission Date: 20210717
  Serious: Yes (Life-Threatening, Hospitalization, Disabling)
  Sender: FDA-Public Use
  Company Number: NL-CELLTRION INC.-2021NL003188

PATIENT

DRUGS (8)
  1. INFLIXIMAB (UNKNOWN) [Suspect]
     Active Substance: INFLIXIMAB
     Dosage: ESCALATED TO 10 MG/KG EVERY 8 WEEKS
     Route: 042
  2. INFLIXIMAB (UNKNOWN) [Suspect]
     Active Substance: INFLIXIMAB
     Dosage: MAINTENANCE THERAPY AT 5 MG/KG, EVERY 8 WEEKS
     Route: 042
  3. INFLIXIMAB (UNKNOWN) [Suspect]
     Active Substance: INFLIXIMAB
     Dosage: 5 MG/KG, WEEK 6 (INDUCTION DOSE)
     Route: 042
  4. INFLIXIMAB (UNKNOWN) [Suspect]
     Active Substance: INFLIXIMAB
     Indication: MICROSCOPIC POLYANGIITIS
     Dosage: 5 MG/KG, WEEK 0 (INDUCTION DOSE)
     Route: 042
  5. INFLIXIMAB (UNKNOWN) [Suspect]
     Active Substance: INFLIXIMAB
     Indication: COLITIS ULCERATIVE
     Dosage: 5 MG/KG, WEEK 2 (INDUCTION DOSE)
     Route: 042
  6. AZATHIOPRINE. [Suspect]
     Active Substance: AZATHIOPRINE
     Indication: COLITIS ULCERATIVE
     Dosage: UNKNOWN
     Route: 065
  7. MESALAMINE. [Concomitant]
     Active Substance: MESALAMINE
     Indication: COLITIS ULCERATIVE
     Dosage: UNKNOWN
     Route: 065
  8. METHOTREXATE. [Concomitant]
     Active Substance: METHOTREXATE
     Indication: VASCULAR DISORDER PROPHYLAXIS
     Dosage: 20 MG, WEEKLY
     Route: 048

REACTIONS (7)
  - Peroneal nerve palsy [Recovering/Resolving]
  - C-reactive protein increased [Recovered/Resolved]
  - Drug level below therapeutic [Recovered/Resolved]
  - Off label use [Unknown]
  - Overdose [Unknown]
  - Microscopic polyangiitis [Recovered/Resolved with Sequelae]
  - Neuropathy peripheral [Not Recovered/Not Resolved]
